FAERS Safety Report 5814399-2 (Version None)
Quarter: 2008Q3

REPORT INFORMATION
  Report Type: 
  Country: None (occurrence: None)
  Receive Date: 20080718
  Receipt Date: 20080630
  Transmission Date: 20090109
  Serious: No
  Sender: FDA-Public Use
  Company Number: US-BAYER-200821425NA

PATIENT
  Sex: Male
  Weight: 79 kg

DRUGS (3)
  1. LEUKINE [Suspect]
     Indication: WHITE BLOOD CELL COUNT DECREASED
     Route: 058
     Dates: start: 20080301
  2. LEUKINE [Suspect]
     Route: 058
     Dates: start: 20080402
  3. REVLIMID [Concomitant]
     Indication: PROSTATE CANCER

REACTIONS (1)
  - WHITE BLOOD CELL COUNT DECREASED [None]
